FAERS Safety Report 20571334 (Version 1)
Quarter: 2022Q1

REPORT INFORMATION
  Report Type: Spontaneous
  Country: US (occurrence: US)
  Receive Date: 20220309
  Receipt Date: 20220309
  Transmission Date: 20220423
  Serious: Yes (Other)
  Sender: FDA-Public Use
  Company Number: US-MLMSERVICE-20220224-3394531-1

PATIENT
  Age: 70 Year
  Sex: Female

DRUGS (1)
  1. PACLITAXEL [Suspect]
     Active Substance: PACLITAXEL
     Indication: Breast cancer stage III

REACTIONS (3)
  - Dermatosis [Recovered/Resolved]
  - Alopecia [Recovering/Resolving]
  - Hyperkeratosis [Recovered/Resolved]
